FAERS Safety Report 14335308 (Version 5)
Quarter: 2018Q2

REPORT INFORMATION
  Report Type: Report from Study
  Country: IL (occurrence: IL)
  Receive Date: 20171229
  Receipt Date: 20180430
  Transmission Date: 20180711
  Serious: Yes (Hospitalization)
  Sender: FDA-Public Use
  Company Number: IL-INCYTE CORPORATION-2017IN011124

PATIENT

DRUGS (1)
  1. JAKAVI [Suspect]
     Active Substance: RUXOLITINIB
     Indication: MYELOFIBROSIS
     Dosage: 15 MG, BID
     Route: 048
     Dates: start: 20170201

REACTIONS (8)
  - Pyrexia [Recovered/Resolved]
  - Platelet count decreased [Unknown]
  - Urinary tract infection [Unknown]
  - Cardiac murmur [Not Recovered/Not Resolved]
  - Arthralgia [Recovered/Resolved]
  - Haemoglobin decreased [Unknown]
  - Weight increased [Not Recovered/Not Resolved]
  - Haematoma [Not Recovered/Not Resolved]
